FAERS Safety Report 10295463 (Version 2)
Quarter: 2014Q3

REPORT INFORMATION
  Report Type: Report from Study
  Country: HU (occurrence: HU)
  Receive Date: 20140711
  Receipt Date: 20140711
  Transmission Date: 20150326
  Serious: Yes (Death, Hospitalization, Other)
  Sender: FDA-Public Use
  Company Number: HU-ROCHE-1096336

PATIENT
  Age: 63 Year
  Sex: Male

DRUGS (2)
  1. CAPECITABINE [Suspect]
     Active Substance: CAPECITABINE
     Indication: COLORECTAL CANCER
     Route: 048
     Dates: start: 20120720, end: 20120917
  2. IRINOTECAN [Suspect]
     Active Substance: IRINOTECAN
     Indication: COLORECTAL CANCER
     Route: 065

REACTIONS (17)
  - Febrile neutropenia [Unknown]
  - Hydrothorax [Unknown]
  - Metastases to lung [Fatal]
  - Fluid intake reduced [Unknown]
  - Diarrhoea [Not Recovered/Not Resolved]
  - Dyspnoea [Unknown]
  - Neutropenia [Unknown]
  - Weight decreased [Unknown]
  - Dehydration [Unknown]
  - Urinary tract infection [Unknown]
  - Pain [Unknown]
  - Asthenia [Unknown]
  - Disease progression [Fatal]
  - Malignant neoplasm of pleura [Unknown]
  - Decreased appetite [Unknown]
  - Urine analysis abnormal [Unknown]
  - Leukopenia [Unknown]

NARRATIVE: CASE EVENT DATE: 20120910
